FAERS Safety Report 6425470 (Version 4)
Quarter: 2012Q4

REPORT INFORMATION
  Report Type: 
  Country: GB (occurrence: GB)
  Receive Date: 20070924
  Receipt Date: 20121207
  Transmission Date: 20130627
  Serious: Yes (Other)
  Sender: FDA-Public Use
  Company Number: GB-JNJFOC-20070904046

PATIENT
  Age: 21 Year
  Sex: Female

DRUGS (4)
  1. IBUPROFEN [Suspect]
     Indication: ARTHROPATHY
     Dosage: dose and frequency unknown
     Dates: start: 2003, end: 2003
  2. AZITHROMYCIN [Interacting]
     Indication: ANTIINFLAMMATORY THERAPY
     Dates: start: 2003, end: 2003
  3. COLISTIN [Interacting]
     Indication: PSEUDOMONAS INFECTION
     Dosage: 2df
     Route: 042
     Dates: start: 200311
  4. TOBRAMYCIN [Interacting]
     Indication: PSEUDOMONAS INFECTION
     Route: 042
     Dates: start: 200311

REACTIONS (6)
  - Renal failure acute [Recovered/Resolved]
  - Drug interaction [Recovered/Resolved]
  - Hypophagia [Recovered/Resolved]
  - Vomiting [Recovered/Resolved]
  - Weight decreased [Recovered/Resolved]
  - Dyspepsia [Recovered/Resolved]
